FAERS Safety Report 9879477 (Version 1)
Quarter: 2014Q1

REPORT INFORMATION
  Report Type: Spontaneous
  Country: FR (occurrence: FR)
  Receive Date: 20140206
  Receipt Date: 20140206
  Transmission Date: 20141002
  Serious: Yes (Hospitalization, Other)
  Sender: FDA-Public Use
  Company Number: FR-ELI_LILLY_AND_COMPANY-FR201402000723

PATIENT
  Age: 64 Year
  Sex: Male

DRUGS (3)
  1. ALIMTA [Suspect]
     Indication: LARGE CELL LUNG CANCER
     Dosage: 845 MG, CYCLICAL
     Route: 042
     Dates: start: 20131106, end: 20131106
  2. DEXAMETHASONE [Suspect]
     Indication: PREMEDICATION
     Dosage: 60 MG, QD
     Route: 042
     Dates: start: 20131105, end: 20131107
  3. FERINJECT [Suspect]
     Indication: IRON DEFICIENCY
     Dosage: 1 G, OTHER
     Route: 042
     Dates: start: 20131106, end: 20131106

REACTIONS (3)
  - Rash pustular [Recovered/Resolved]
  - Scar [Unknown]
  - Folliculitis [Recovered/Resolved]
